FAERS Safety Report 10033955 (Version 1)
Quarter: 2014Q1

REPORT INFORMATION
  Report Type: Spontaneous
  Country: US (occurrence: None)
  Receive Date: 20140324
  Receipt Date: 20140324
  Transmission Date: 20141002
  Serious: Yes (Hospitalization, Other)
  Sender: FDA-Public Use
  Company Number: None

PATIENT
  Age: 86 Year
  Sex: 0

DRUGS (11)
  1. DOXYCYCLINE [Suspect]
  2. TRAMADOL PRN [Concomitant]
  3. DOXYCYCLINE [Concomitant]
  4. HYDROCORTISONE CREAM [Concomitant]
  5. NYSTATIN POWDER [Concomitant]
  6. BENADRYL [Concomitant]
  7. PEPSID [Concomitant]
  8. LASIX [Concomitant]
  9. HEPARIN SUBQ [Concomitant]
  10. VANVOMYCIN [Concomitant]
  11. METHYLPREDNISOLONE [Concomitant]

REACTIONS (4)
  - Rash [None]
  - Erythema [None]
  - Skin exfoliation [None]
  - Stevens-Johnson syndrome [None]
